FAERS Safety Report 5905237-8 (Version None)
Quarter: 2008Q3

REPORT INFORMATION
  Report Type: 
  Country: None (occurrence: None)
  Receive Date: 20080909
  Receipt Date: 20071024
  Transmission Date: 20090109
  Serious: Yes (Death)
  Sender: FDA-Public Use
  Company Number: 163-20785-07101365

PATIENT
  Age: 47 Year
  Sex: Male

DRUGS (2)
  1. THALOMID [Suspect]
     Indication: MULTIPLE MYELOMA
     Dosage: 150 MG, 3 IN 1 D, ORAL : 100-200MG DAILY, ORAL
     Route: 048
     Dates: start: 20050601, end: 20050601
  2. THALOMID [Suspect]
     Indication: MULTIPLE MYELOMA
     Dosage: 150 MG, 3 IN 1 D, ORAL : 100-200MG DAILY, ORAL
     Route: 048
     Dates: start: 20070401, end: 20070901

REACTIONS (1)
  - DEATH [None]
